FAERS Safety Report 9601663 (Version 1)
Quarter: 2013Q4

REPORT INFORMATION
  Report Type: Spontaneous
  Country: US (occurrence: None)
  Receive Date: 20131004
  Receipt Date: 20131004
  Transmission Date: 20140711
  Serious: Yes (Other)
  Sender: FDA-Public Use
  Company Number: None

PATIENT
  Age: 62 Year
  Sex: Female
  Weight: 85 kg

DRUGS (17)
  1. RANIBIZUMAB [Suspect]
     Indication: DIABETIC RETINAL OEDEMA
     Dosage: Q3MTHS
     Dates: start: 20121220
  2. ICO-007 [Suspect]
     Indication: DIABETIC RETINAL OEDEMA
     Dosage: Q3MTHS
     Dates: start: 20130103
  3. METFORMIN [Concomitant]
  4. GLYBURIDE [Concomitant]
  5. LANTUS [Concomitant]
  6. LISINOPRIL [Concomitant]
  7. GABAPENTIN [Concomitant]
  8. NEREMEDY [Concomitant]
  9. B12 [Concomitant]
  10. TYLENOL [Concomitant]
  11. IBUPROFEN [Concomitant]
  12. SIMVASTATIN [Concomitant]
  13. PREDNISILONE [Concomitant]
  14. CYCLOPENTOLATE [Concomitant]
  15. CLONIDINE [Concomitant]
  16. MOBIC [Concomitant]
  17. VICTOZA [Concomitant]

REACTIONS (3)
  - Cataract [None]
  - Disease progression [None]
  - Visual acuity reduced [None]
